FAERS Safety Report 5210330-1 (Version None)
Quarter: 2007Q1

REPORT INFORMATION
  Report Type: 
  Country: None (occurrence: None)
  Receive Date: 20070117
  Receipt Date: 20070105
  Transmission Date: 20070707
  Serious: Yes (Other)
  Sender: FDA-Public Use
  Company Number: PHFR2007GB00483

PATIENT
  Age: 71 Year
  Sex: Female
  Weight: 63 kg

DRUGS (13)
  1. LETROZOLE [Suspect]
     Indication: BREAST CANCER
     Dosage: 2.5 MG/DAY
     Route: 048
     Dates: start: 20060713
  2. AMISULPRIDE [Concomitant]
     Dosage: 25MG/DAY
     Route: 048
     Dates: start: 20060814, end: 20060830
  3. AMLODIPINE [Concomitant]
     Indication: HYPERTENSION
     Route: 048
     Dates: start: 20060709
  4. ASPIRIN [Concomitant]
     Indication: CEREBROVASCULAR ACCIDENT
     Route: 048
     Dates: start: 20060701
  5. BENDROFLUAZIDE [Concomitant]
     Indication: HYPERTENSION
     Dosage: UNK, UNK
     Route: 048
     Dates: start: 20060707, end: 20060727
  6. CANDESARTAN [Concomitant]
     Indication: HYPERTENSION
     Dosage: 16 MG, QD
     Route: 048
     Dates: start: 20060602
  7. AMOXICILLIN + CLAVULANATE POTASSIUM [Concomitant]
     Indication: INFECTION
     Dates: start: 20060701, end: 20060713
  8. DEXAMETHASONE [Concomitant]
     Dosage: 16 MG TOTAL
  9. DOXAZOSIN MESYLATE [Concomitant]
     Indication: HYPERTENSION
     Dosage: 4 MG, QD
     Route: 048
     Dates: start: 20060717
  10. LABETALOL HCL [Concomitant]
     Indication: HYPERTENSION
     Dosage: 200 MG, BID
     Route: 048
     Dates: start: 20060603
  11. LANSOPRAZOLE [Concomitant]
     Indication: PROPHYLAXIS
     Dosage: 30 MG/DAY
     Route: 048
     Dates: start: 20060702
  12. SENNA [Concomitant]
     Dosage: 2 DF, PRN
     Route: 065
  13. SIMVASTATIN [Concomitant]
     Indication: CEREBROVASCULAR ACCIDENT
     Dosage: 40 MG, QD
     Route: 048
     Dates: start: 20060705

REACTIONS (1)
  - PARANOIA [None]
